FAERS Safety Report 14945965 (Version 1)
Quarter: 2018Q2

REPORT INFORMATION
  Report Type: Report from Study
  Country: ES (occurrence: ES)
  Receive Date: 20180529
  Receipt Date: 20180529
  Transmission Date: 20180711
  Serious: Yes (Hospitalization)
  Sender: FDA-Public Use
  Company Number: ES-TEVA-2018-ES-898863

PATIENT
  Age: 84 Year
  Sex: Female

DRUGS (2)
  1. CEFTRIAXONA (501A) [Suspect]
     Active Substance: CEFTRIAXONE
     Indication: EXTRADURAL ABSCESS
     Dosage: 2 GRAM DAILY;
     Route: 042
     Dates: start: 20170210, end: 20170217
  2. LINEZOLID. [Suspect]
     Active Substance: LINEZOLID
     Indication: EXTRADURAL ABSCESS
     Route: 042
     Dates: start: 20170210, end: 20170217

REACTIONS (1)
  - Hepatitis cholestatic [Recovering/Resolving]

NARRATIVE: CASE EVENT DATE: 20170217
